FAERS Safety Report 21928541 (Version 2)
Quarter: 2023Q1

REPORT INFORMATION
  Report Type: Spontaneous
  Country: DE (occurrence: DE)
  Receive Date: 20230130
  Receipt Date: 20230203
  Transmission Date: 20230417
  Serious: Yes (Other)
  Sender: FDA-Public Use
  Company Number: DE-BRISTOL-MYERS SQUIBB COMPANY-2022-157390

PATIENT
  Age: 64 Year
  Sex: Female
  Weight: 80 kg

DRUGS (2)
  1. ZEPOSIA [Suspect]
     Active Substance: OZANIMOD HYDROCHLORIDE
     Indication: Colitis ulcerative
     Dosage: 0.23 MG/DL- DAILY FROM DAY 1 UNTIL DAY 4 [OF THE THERAPY], ?0.46 MG/DL -FROM DAY 5 UNTIL?7 ?0.92 MG/
     Route: 048
     Dates: start: 20220824, end: 20221206
  2. ASACOL [Suspect]
     Active Substance: MESALAMINE
     Indication: Product used for unknown indication

REACTIONS (5)
  - Tachycardia [Recovered/Resolved]
  - Weight decreased [Recovered/Resolved]
  - Dyspnoea [Recovered/Resolved]
  - Asthenia [Recovered/Resolved]
  - Lymphopenia [Recovered/Resolved]

NARRATIVE: CASE EVENT DATE: 20221117
